FAERS Safety Report 21946737 (Version 4)
Quarter: 2023Q1

REPORT INFORMATION
  Report Type: Report from Study
  Country: TR (occurrence: None)
  Receive Date: 20230202
  Receipt Date: 20230303
  Transmission Date: 20230417
  Serious: Yes (Hospitalization)
  Sender: FDA-Public Use
  Company Number: TR-ROCHE-3272949

PATIENT
  Age: 57 Year
  Sex: Male
  Weight: 70.7 kg

DRUGS (9)
  1. ATEZOLIZUMAB [Suspect]
     Active Substance: ATEZOLIZUMAB
     Indication: Lung cancer metastatic
     Route: 041
     Dates: start: 20221128
  2. ATEZOLIZUMAB [Suspect]
     Active Substance: ATEZOLIZUMAB
     Indication: Lung cancer metastatic
     Route: 041
     Dates: start: 20221128
  3. TIRAGOLUMAB [Suspect]
     Active Substance: TIRAGOLUMAB
     Indication: Lung cancer metastatic
     Dosage: START DATE OF MOST RECENT DOSE OF STUDY DRUG PRIOR TO AE/SAE 09/JAN/2023
     Route: 042
     Dates: start: 20221128
  4. PEMETREXED [Suspect]
     Active Substance: PEMETREXED
     Indication: Lung cancer metastatic
     Dosage: START DATE OF MOST RECENT DOSE OF STUDY DRUG PRIOR TO AE/SAE: 09/JAN/2023 (946 MG)
     Route: 042
     Dates: start: 20221128
  5. CARBOPLATIN [Suspect]
     Active Substance: CARBOPLATIN
     Indication: Lung cancer metastatic
     Dosage: START DATE OF MOST RECENT DOSE OF STUDY DRUG PRIOR TO AE/SAE: 09/JAN/2023 (580 MG)
     Route: 042
     Dates: start: 20221128
  6. KEPPRA [Concomitant]
     Active Substance: LEVETIRACETAM
     Dates: start: 20220913
  7. DEXAMETHASONE [Concomitant]
     Active Substance: DEXAMETHASONE
     Indication: Premedication
     Dates: start: 20221128
  8. PHENIRAMINE [Concomitant]
     Active Substance: PHENIRAMINE
     Indication: Premedication
     Dates: start: 20221128
  9. FOLIC ACID [Concomitant]
     Active Substance: FOLIC ACID
     Dates: start: 20221128

REACTIONS (1)
  - Hypophagia [Recovered/Resolved]

NARRATIVE: CASE EVENT DATE: 20230123
